FAERS Safety Report 6127344-X (Version None)
Quarter: 2009Q1

REPORT INFORMATION
  Report Type: 
  Country: None (occurrence: None)
  Receive Date: 20090319
  Receipt Date: 20090309
  Transmission Date: 20090719
  Serious: Yes (Other)
  Sender: FDA-Public Use
  Company Number: 2009AP000972

PATIENT
  Age: 25 Year
  Sex: Male

DRUGS (5)
  1. VALPROIC ACID SYRUP [Suspect]
     Dosage: 250 MG; QD
  2. PREDNISONE [Concomitant]
  3. AZATHIOPRINE [Concomitant]
  4. QUETIAPINE FUMARATE [Concomitant]
  5. ESOMEPRAZOLE MAGNESIUM [Concomitant]

REACTIONS (3)
  - EOSINOPHILIA [None]
  - HYPERSENSITIVITY [None]
  - PLEURAL EFFUSION [None]
